FAERS Safety Report 7097486-3 (Version None)
Quarter: 2010Q4

REPORT INFORMATION
  Report Type: 
  Country: None (occurrence: None)
  Receive Date: 20101111
  Receipt Date: 20101026
  Transmission Date: 20110411
  Serious: Yes (Other)
  Sender: FDA-Public Use
  Company Number: PHBS2002JP01077

PATIENT
  Sex: Male

DRUGS (4)
  1. GLEEVEC [Suspect]
     Indication: CHRONIC MYELOID LEUKAEMIA
     Dosage: 400 MG/DAY
     Route: 048
     Dates: start: 20011211, end: 20011228
  2. GLEEVEC [Suspect]
     Dosage: 300 MG/DAY
     Route: 048
     Dates: start: 20011229, end: 20020108
  3. GLEEVEC [Suspect]
     Dosage: 200 MG/DAY
     Route: 048
     Dates: start: 20020109, end: 20020511
  4. EPOGIN [Concomitant]
     Indication: GLOMERULONEPHRITIS CHRONIC
     Dosage: 6000 IU, UNK
     Route: 058
     Dates: start: 20080226

REACTIONS (2)
  - EYELID OEDEMA [None]
  - PANCYTOPENIA [None]
